FAERS Safety Report 5834772-6 (Version None)
Quarter: 2008Q3

REPORT INFORMATION
  Report Type: 
  Country: None (occurrence: None)
  Receive Date: 20080804
  Receipt Date: 20080724
  Transmission Date: 20090109
  Serious: Yes (Other)
  Sender: FDA-Public Use
  Company Number: 163-21880-08061780

PATIENT
  Age: 54 Year
  Sex: Male

DRUGS (2)
  1. REVLIMID [Suspect]
     Indication: MYELODYSPLASTIC SYNDROME
     Dosage: 10 MG, DAILY FOR 28 DAYS, ORAL
     Route: 048
     Dates: start: 20070524
  2. TESTOSTERONE [Concomitant]

REACTIONS (12)
  - ASTHENIA [None]
  - DYSPNOEA [None]
  - GASTROINTESTINAL INFECTION [None]
  - HAEMATOCRIT DECREASED [None]
  - HAEMOGLOBIN ABNORMAL [None]
  - HAEMOGLOBIN DECREASED [None]
  - OEDEMA PERIPHERAL [None]
  - PLATELET COUNT DECREASED [None]
  - POST PROCEDURAL HAEMORRHAGE [None]
  - SKIN CANCER [None]
  - TOOTH EXTRACTION [None]
  - WHITE BLOOD CELL COUNT DECREASED [None]
